FAERS Safety Report 12381931 (Version 1)
Quarter: 2016Q2

REPORT INFORMATION
  Report Type: Spontaneous
  Country: US (occurrence: None)
  Receive Date: 20160517
  Receipt Date: 20160517
  Transmission Date: 20160815
  Serious: Yes (Other)
  Sender: FDA-Public Use
  Company Number: None

PATIENT
  Age: 88 Year
  Sex: Male
  Weight: 62.05 kg

DRUGS (1)
  1. ENZALUTAMIDE [Suspect]
     Active Substance: ENZALUTAMIDE
     Indication: PROSTATE CANCER
     Route: 048
     Dates: start: 20160316, end: 20160325

REACTIONS (4)
  - Lacrimation increased [None]
  - Oropharyngeal pain [None]
  - Memory impairment [None]
  - Nasal disorder [None]

NARRATIVE: CASE EVENT DATE: 20160325
